FAERS Safety Report 8208122-4 (Version None)
Quarter: 2012Q1

REPORT INFORMATION
  Report Type: 
  Country: None (occurrence: None)
  Receive Date: 20120314
  Receipt Date: 20120306
  Transmission Date: 20120608
  Serious: No
  Sender: FDA-Public Use
  Company Number: PHHY2012JP008117

PATIENT
  Age: 65 Year
  Sex: Male

DRUGS (7)
  1. RADEN [Concomitant]
     Route: 048
  2. DIGOXIN [Concomitant]
     Route: 048
  3. ONBREZ [Suspect]
     Indication: EMPHYSEMA
     Dates: start: 20120120
  4. SITAGLIPTIN PHOSPHATE [Concomitant]
     Route: 048
  5. LIPITOR [Concomitant]
     Route: 048
  6. AMARYL [Concomitant]
     Route: 048
  7. PLAVIX [Concomitant]
     Dosage: UNK
     Route: 048

REACTIONS (1)
  - SPUTUM INCREASED [None]
